FAERS Safety Report 21375988 (Version 1)
Quarter: 2022Q3

REPORT INFORMATION
  Report Type: Report from Study
  Country: US (occurrence: US)
  Receive Date: 20220926
  Receipt Date: 20220926
  Transmission Date: 20221026
  Serious: Yes (Other)
  Sender: FDA-Public Use
  Company Number: US-BAYER-2022A131133

PATIENT
  Age: 57 Year
  Sex: Female

DRUGS (1)
  1. VITRAKVI [Suspect]
     Active Substance: LAROTRECTINIB
     Indication: Endometrial cancer
     Dosage: 100 MG, BID
     Route: 048
     Dates: start: 20220512

REACTIONS (8)
  - Neuropathy peripheral [Not Recovered/Not Resolved]
  - Product dose omission issue [None]
  - Hyperhidrosis [Not Recovered/Not Resolved]
  - Oedema peripheral [Not Recovered/Not Resolved]
  - Gait disturbance [Not Recovered/Not Resolved]
  - Photophobia [Not Recovered/Not Resolved]
  - Pain [Recovered/Resolved]
  - Eye pain [Recovered/Resolved]
